FAERS Safety Report 7812769-4 (Version None)
Quarter: 2011Q4

REPORT INFORMATION
  Report Type: 
  Country: None (occurrence: None)
  Receive Date: 20111013
  Receipt Date: 20110930
  Transmission Date: 20120403
  Serious: Yes (Other)
  Sender: FDA-Public Use
  Company Number: US-BAYER-2011-081857

PATIENT
  Age: 70 Year
  Sex: Male
  Weight: 88.435 kg

DRUGS (3)
  1. ASPIRIN [Suspect]
     Dosage: 500 MG, PRN
     Route: 048
     Dates: start: 20110801, end: 20110826
  2. FISH OIL [Concomitant]
  3. SIMVASTATIN [Concomitant]

REACTIONS (3)
  - PRODUCTIVE COUGH [None]
  - CHOKING [None]
  - THROAT IRRITATION [None]
